FAERS Safety Report 24970152 (Version 2)
Quarter: 2025Q1

REPORT INFORMATION
  Report Type: Report from Study
  Country: US (occurrence: US)
  Receive Date: 20250214
  Receipt Date: 20250328
  Transmission Date: 20250409
  Serious: Yes (Other)
  Sender: UCB
  Company Number: US-UCBSA-2025007859

PATIENT
  Age: 33 Year
  Sex: Male
  Weight: 54.4 kg

DRUGS (2)
  1. FINTEPLA [Suspect]
     Active Substance: FENFLURAMINE
     Indication: Product used for unknown indication
     Dates: start: 20240601
  2. FINTEPLA [Suspect]
     Active Substance: FENFLURAMINE
     Indication: Epilepsy
     Dosage: 10.5 MILLILITER, 2X/DAY (BID)

REACTIONS (5)
  - Tricuspid valve incompetence [Unknown]
  - Seizure [Not Recovered/Not Resolved]
  - Face injury [Not Recovered/Not Resolved]
  - Head injury [Not Recovered/Not Resolved]
  - Overdose [Unknown]

NARRATIVE: CASE EVENT DATE: 20250206
